FAERS Safety Report 13696564 (Version 8)
Quarter: 2018Q2

REPORT INFORMATION
  Report Type: Report from Study
  Country: CZ (occurrence: CZ)
  Receive Date: 20170628
  Receipt Date: 20180606
  Transmission Date: 20180711
  Serious: Yes (Hospitalization)
  Sender: FDA-Public Use
  Company Number: PHHO2017CZ009518

PATIENT
  Age: 81 Year
  Sex: Female
  Weight: 68 kg

DRUGS (5)
  1. CALCICHEW [Concomitant]
     Active Substance: CALCIUM CARBONATE
     Indication: PROPHYLAXIS
     Dosage: 1 DF, QD
     Route: 048
     Dates: start: 2016
  2. TARKA [Concomitant]
     Active Substance: TRANDOLAPRIL\VERAPAMIL HYDROCHLORIDE
     Indication: HYPERTENSION
     Dosage: 1 DF, (180/20MG)
     Route: 065
  3. VASOPIRIN [Concomitant]
     Indication: THROMBOSIS PROPHYLAXIS
     Dosage: 1 DF, QD
     Route: 048
     Dates: start: 20170101
  4. LDK378 [Suspect]
     Active Substance: CERITINIB
     Indication: NON-SMALL CELL LUNG CANCER METASTATIC
     Dosage: 600 MG, QD
     Route: 048
     Dates: start: 20170530, end: 20170620
  5. DETRALEX [Concomitant]
     Active Substance: DIOSMIN\HESPERIDIN
     Indication: THROMBOPHLEBITIS
     Dosage: 1 DF, QD
     Route: 048
     Dates: start: 201611

REACTIONS (3)
  - Alanine aminotransferase increased [Recovered/Resolved]
  - Hypokalaemia [Recovered/Resolved]
  - Aspartate aminotransferase increased [Recovered/Resolved]

NARRATIVE: CASE EVENT DATE: 20170620
